FAERS Safety Report 9838247 (Version 1)
Quarter: 2014Q1

REPORT INFORMATION
  Report Type: Report from Study
  Country: CN (occurrence: CN)
  Receive Date: 20140123
  Receipt Date: 20140123
  Transmission Date: 20141002
  Serious: Yes (Other)
  Sender: FDA-Public Use
  Company Number: CN-ROCHE-1336531

PATIENT
  Age: 46 Year
  Sex: Female

DRUGS (8)
  1. TRASTUZUMAB [Suspect]
     Indication: BREAST CANCER
     Route: 065
  2. TRASTUZUMAB [Suspect]
     Dosage: 11/SEP/2012
     Route: 065
  3. CAPECITABINE [Suspect]
     Indication: BREAST CANCER
     Route: 065
  4. TEGAFUR [Concomitant]
     Indication: BREAST CANCER
     Route: 065
  5. PACLITAXEL [Concomitant]
     Indication: BREAST CANCER
     Dosage: 6 CYCLES
     Route: 065
  6. DOCETAXEL [Concomitant]
     Route: 065
  7. THIOTEPA [Concomitant]
     Route: 065
  8. ALBUMIN-BOUND PACLITAXEL [Concomitant]

REACTIONS (4)
  - Disease progression [Recovering/Resolving]
  - Chest pain [Unknown]
  - Back pain [Unknown]
  - Platelet count decreased [Recovered/Resolved]
